FAERS Safety Report 8902508 (Version 2)
Quarter: 2012Q4

REPORT INFORMATION
  Report Type: 
  Country: GR (occurrence: GR)
  Receive Date: 20121112
  Receipt Date: 20121119
  Transmission Date: 20130627
  Serious: Yes (Hospitalization)
  Sender: FDA-Public Use
  Company Number: GR-ELI_LILLY_AND_COMPANY-GR201210005053

PATIENT
  Age: 87 Year
  Sex: Female

DRUGS (1)
  1. FORSTEO [Suspect]
     Indication: OSTEOPOROSIS
     Dosage: 20 ug, qd
     Route: 058
     Dates: start: 20120524, end: 20120624

REACTIONS (3)
  - Pneumonia [Recovered/Resolved]
  - Urinary tract infection [Recovered/Resolved]
  - Fatigue [Recovered/Resolved]
